FAERS Safety Report 7683809-0 (Version None)
Quarter: 2011Q3

REPORT INFORMATION
  Report Type: 
  Country: None (occurrence: None)
  Receive Date: 20110815
  Receipt Date: 20110809
  Transmission Date: 20111222
  Serious: Yes (Hospitalization, Other)
  Sender: FDA-Public Use
  Company Number: IT-PFIZER INC-2011183346

PATIENT
  Age: 91 Year
  Sex: Female

DRUGS (6)
  1. BISOPROLOL FUMARATE [Concomitant]
     Route: 048
  2. ATORVASTATIN CALCIUM [Suspect]
     Indication: HYPERCHOLESTEROLAEMIA
     Dosage: 80 MG, 1X/DAY
     Route: 048
     Dates: start: 20110616, end: 20110725
  3. LASIX [Concomitant]
     Route: 048
  4. ALLOPURINOL [Concomitant]
  5. PLAVIX [Concomitant]
     Route: 048
  6. ALDACTONE [Concomitant]

REACTIONS (3)
  - LIVER DISORDER [None]
  - RHABDOMYOLYSIS [None]
  - RENAL FAILURE [None]
